FAERS Safety Report 19471186 (Version 6)
Quarter: 2021Q3

REPORT INFORMATION
  Report Type: Report from Study
  Country: IL (occurrence: IL)
  Receive Date: 20210629
  Receipt Date: 20210908
  Transmission Date: 20211014
  Serious: Yes (Hospitalization, Other)
  Sender: FDA-Public Use
  Company Number: IL-JNJFOC-20210507305

PATIENT
  Age: 40 Year
  Sex: Female

DRUGS (9)
  1. SIMPONI [Suspect]
     Active Substance: GOLIMUMAB
     Indication: ANKYLOSING SPONDYLITIS
     Route: 058
     Dates: start: 20200901
  2. TRULICITY [Concomitant]
     Active Substance: DULAGLUTIDE
     Indication: DIABETES MELLITUS
  3. ADVIL ULTRA FORTE [Suspect]
     Active Substance: IBUPROFEN
     Indication: ARTHRALGIA
     Route: 065
  4. LIRAGLUTIDE [Suspect]
     Active Substance: LIRAGLUTIDE
     Route: 065
  5. GLUCOMIN [Suspect]
     Active Substance: METFORMIN HYDROCHLORIDE
     Indication: DIABETES MELLITUS
     Route: 065
  6. OPTALGIN [Concomitant]
     Active Substance: METAMIZOLE
  7. NORVASC [Concomitant]
     Active Substance: AMLODIPINE BESYLATE
     Indication: HYPERTENSION
  8. ASPIRIN [ACETYLSALICYLIC ACID] [Concomitant]
     Active Substance: ASPIRIN
     Indication: PRODUCT USED FOR UNKNOWN INDICATION
  9. VITAMIN D [ERGOCALCIFEROL] [Concomitant]
     Active Substance: ERGOCALCIFEROL
     Indication: PRODUCT USED FOR UNKNOWN INDICATION

REACTIONS (17)
  - Pneumonia [Recovered/Resolved]
  - Purulence [Recovered/Resolved]
  - Back pain [Not Recovered/Not Resolved]
  - Nasopharyngitis [Recovered/Resolved]
  - Abdominal pain [Not Recovered/Not Resolved]
  - Ear pain [Recovered/Resolved]
  - Vaginal discharge [Recovering/Resolving]
  - Renal failure [Recovering/Resolving]
  - Nausea [Unknown]
  - Diarrhoea [Not Recovered/Not Resolved]
  - Drug delivery system malfunction [Unknown]
  - Peripheral swelling [Unknown]
  - Arthralgia [Not Recovered/Not Resolved]
  - Hepatic steatosis [Unknown]
  - Accidental exposure to product [Unknown]
  - Coronavirus infection [Recovered/Resolved]
  - Dysuria [Not Recovered/Not Resolved]

NARRATIVE: CASE EVENT DATE: 2021
